FAERS Safety Report 5794127-X (Version None)
Quarter: 2008Q2

REPORT INFORMATION
  Report Type: 
  Country: None (occurrence: None)
  Receive Date: 20080627
  Receipt Date: 20080618
  Transmission Date: 20081010
  Serious: Yes (Hospitalization, Disabling)
  Sender: FDA-Public Use
  Company Number: US-MERCK-0705USA01440

PATIENT
  Age: 68 Year
  Sex: Female
  Weight: 56 kg

DRUGS (1)
  1. FOSAMAX [Suspect]
     Indication: OSTEOPOROSIS
     Route: 048
     Dates: start: 20030912, end: 20070531

REACTIONS (16)
  - CERUMEN IMPACTION [None]
  - COLON CANCER [None]
  - COLON CANCER METASTATIC [None]
  - CORONARY ARTERY DISEASE [None]
  - DENTAL CARIES [None]
  - DIVERTICULUM INTESTINAL [None]
  - GINGIVAL DISORDER [None]
  - HAEMORRHOIDS [None]
  - INTERVERTEBRAL DISC DEGENERATION [None]
  - JAW DISORDER [None]
  - MUSCULOSKELETAL PAIN [None]
  - NECK PAIN [None]
  - OPHTHALMOPLEGIA [None]
  - PAIN IN JAW [None]
  - PARKINSON'S DISEASE [None]
  - TRISMUS [None]
